FAERS Safety Report 16169841 (Version 1)
Quarter: 2019Q2

REPORT INFORMATION
  Report Type: Spontaneous
  Country: CA (occurrence: CA)
  Receive Date: 20190408
  Receipt Date: 20190408
  Transmission Date: 20190711
  Serious: Yes (Hospitalization)
  Sender: FDA-Public Use
  Company Number: CA-IONIS PHARMACEUTICALS, INC.-2019-TEG-017

PATIENT

DRUGS (8)
  1. TEGSEDI [Suspect]
     Active Substance: INOTERSEN SODIUM
     Indication: FAMILIAL AMYLOIDOSIS
     Dosage: 284 MG, 1/WEEK
     Route: 058
     Dates: start: 20190105, end: 201903
  2. DUOTRAV [Concomitant]
     Active Substance: TIMOLOL MALEATE\TRAVOPROST
     Indication: GLAUCOMA
     Dosage: 1 GTT LEFT EYE QD
  3. DULOXETINE. [Concomitant]
     Active Substance: DULOXETINE
     Indication: PAIN
     Dosage: UNK
     Dates: start: 201902
  4. VITAMIN A                          /00056001/ [Concomitant]
     Active Substance: RETINOL
     Indication: PROPHYLAXIS
     Dosage: 10000 IU, Q 3 DAYS
     Route: 048
     Dates: start: 20190121
  5. TAMSULOSIN [Concomitant]
     Active Substance: TAMSULOSIN
     Indication: INCONTINENCE
     Dosage: 0.4 MG, QD
     Route: 048
  6. SIMBRINZA [Concomitant]
     Active Substance: BRIMONIDINE TARTRATE\BRINZOLAMIDE
     Indication: GLAUCOMA
     Dosage: 1 GTT LEFT EYE QD
  7. TYLENOL [Concomitant]
     Active Substance: ACETAMINOPHEN
     Indication: INFLUENZA LIKE ILLNESS
     Dosage: UNK
  8. BISOPROLOL [Concomitant]
     Active Substance: BISOPROLOL
     Indication: CARDIAC DISORDER
     Dosage: 5 MG, BID
     Route: 048

REACTIONS (18)
  - Haemoglobin decreased [Not Recovered/Not Resolved]
  - Fall [Not Recovered/Not Resolved]
  - Protein total decreased [Not Recovered/Not Resolved]
  - Platelet count decreased [Not Recovered/Not Resolved]
  - Vitamin A decreased [Not Recovered/Not Resolved]
  - Viral infection [Recovered/Resolved]
  - Hypotension [Unknown]
  - Glomerular filtration rate decreased [Not Recovered/Not Resolved]
  - Mean cell haemoglobin concentration increased [Not Recovered/Not Resolved]
  - Hyperhidrosis [Unknown]
  - Dehydration [Unknown]
  - Diarrhoea [Recovered/Resolved]
  - Haematocrit decreased [Not Recovered/Not Resolved]
  - Protein urine present [Not Recovered/Not Resolved]
  - Fatigue [Recovered/Resolved]
  - Pyrexia [Recovered/Resolved]
  - Blood creatinine increased [Not Recovered/Not Resolved]
  - Muscular weakness [Not Recovered/Not Resolved]

NARRATIVE: CASE EVENT DATE: 20190218
